FAERS Safety Report 18012551 (Version 2)
Quarter: 2020Q3

REPORT INFORMATION
  Report Type: Spontaneous
  Country: JP (occurrence: JP)
  Receive Date: 20200713
  Receipt Date: 20200728
  Transmission Date: 20201103
  Serious: Yes (Death)
  Sender: FDA-Public Use
  Company Number: NVSJ2020JP006721

PATIENT
  Age: 63 Year

DRUGS (1)
  1. KYMRIAH [Suspect]
     Active Substance: TISAGENLECLEUCEL
     Indication: DIFFUSE LARGE B-CELL LYMPHOMA RECURRENT
     Dosage: UNK
     Route: 041
     Dates: start: 20200316

REACTIONS (2)
  - Malignant neoplasm progression [Fatal]
  - Diffuse large B-cell lymphoma recurrent [Fatal]
